FAERS Safety Report 6827380-1 (Version None)
Quarter: 2010Q3

REPORT INFORMATION
  Report Type: 
  Country: None (occurrence: None)
  Receive Date: 20100709
  Receipt Date: 20100702
  Transmission Date: 20110219
  Serious: Yes (Other)
  Sender: FDA-Public Use
  Company Number: TW-ABBOTT-08P-153-0484026-00

PATIENT
  Age: 9 Year
  Sex: Female

DRUGS (1)
  1. VALPROIC ACID [Suspect]
     Indication: CONVULSION
     Dosage: NOT REPORTED

REACTIONS (4)
  - APALLIC SYNDROME [None]
  - HEPATIC FAILURE [None]
  - HEPATOTOXICITY [None]
  - PSYCHOMOTOR SKILLS IMPAIRED [None]
